FAERS Safety Report 9503597 (Version 3)
Quarter: 2013Q3

REPORT INFORMATION
  Report Type: Report from Study
  Country: CO (occurrence: CO)
  Receive Date: 20130906
  Receipt Date: 20130923
  Transmission Date: 20140515
  Serious: Yes (Other)
  Sender: FDA-Public Use
  Company Number: CO-PFIZER INC-2013249475

PATIENT
  Age: 68 Year
  Sex: Male
  Weight: 71 kg

DRUGS (2)
  1. PREGABALIN [Suspect]
     Indication: POST HERPETIC NEURALGIA
     Dosage: 660 MG, 1X/DAY
     Route: 048
     Dates: start: 20130717, end: 20130827
  2. CIPROFLOXACIN [Concomitant]
     Indication: URINARY TRACT INFECTION
     Dosage: 500 MG, 2X/DAY
     Route: 048
     Dates: start: 20130727, end: 20130805

REACTIONS (1)
  - Sexual abuse [Unknown]
